FAERS Safety Report 10917641 (Version 1)
Quarter: 2015Q1

REPORT INFORMATION
  Report Type: Spontaneous
  Country: US (occurrence: US)
  Receive Date: 20150316
  Receipt Date: 20150316
  Transmission Date: 20150721
  Serious: Yes (Life-Threatening, Hospitalization)
  Sender: FDA-Public Use
  Company Number: US-BAYER-2015-035172

PATIENT
  Age: 31 Year
  Sex: Female

DRUGS (2)
  1. IBUPROFEN. [Suspect]
     Active Substance: IBUPROFEN
     Dosage: A BOTTLE
  2. DIPHENHYDRAMINE HYDROCHLORIDE. [Suspect]
     Active Substance: DIPHENHYDRAMINE HYDROCHLORIDE

REACTIONS (14)
  - Cardiogenic shock [None]
  - Ventricular tachycardia [None]
  - Haemodynamic instability [None]
  - Mental status changes [None]
  - Pulmonary oedema [Recovering/Resolving]
  - Atrioventricular block first degree [None]
  - Stress cardiomyopathy [None]
  - Hypotension [None]
  - Defect conduction intraventricular [None]
  - Electrocardiogram QT prolonged [None]
  - Cardiac arrest [None]
  - Electrocardiogram abnormal [None]
  - Pulseless electrical activity [None]
  - Overdose [None]
